FAERS Safety Report 7462260-2 (Version None)
Quarter: 2011Q2

REPORT INFORMATION
  Report Type: 
  Country: None (occurrence: None)
  Receive Date: 20110506
  Receipt Date: 20110112
  Transmission Date: 20111010
  Serious: Yes (Hospitalization, Other)
  Sender: FDA-Public Use
  Company Number: US-BAYER-201013338NA

PATIENT
  Age: 37 Year
  Sex: Female
  Weight: 98.182 kg

DRUGS (34)
  1. HYDROCODONE BITARTRATE AND ACETAMINOPHEN [Concomitant]
     Route: 065
     Dates: start: 20081001
  2. METOPROLOL [Concomitant]
     Route: 065
     Dates: start: 20091201
  3. ADENOCARD [Concomitant]
     Indication: SUPRAVENTRICULAR TACHYCARDIA
     Route: 065
     Dates: start: 20090501
  4. CARDIZEM [Concomitant]
     Indication: SUPRAVENTRICULAR TACHYCARDIA
     Route: 065
  5. HERBALS NOS W/MINERALS NOS/VITAMINS NOS [Concomitant]
  6. HERBALS NOS W/MINERALS NOS/VITAMINS NOS [Concomitant]
     Dosage: ^ALL THE TIME^
     Route: 065
  7. PROZAC [Concomitant]
     Route: 065
     Dates: start: 20070401
  8. ACETAMINOPHEN [Concomitant]
     Dosage: ^ALL THE TIME^
     Route: 065
  9. YAZ [Suspect]
     Indication: MENORRHAGIA
     Dosage: YAZ WAS TAKEN INCONSISTENTLY
     Route: 048
     Dates: start: 20081002, end: 20090721
  10. PRISTIQ [Concomitant]
     Indication: DEPRESSION
     Route: 065
     Dates: start: 20081002
  11. VERAPAMIL [Concomitant]
     Route: 065
     Dates: start: 20091001, end: 20091026
  12. ZOFRAN [Concomitant]
     Indication: NAUSEA
  13. MIRALAX [Concomitant]
     Route: 065
     Dates: start: 20081101
  14. PROPOXYPHENE NAPSYLATE W/ ACETAMINOPHEN [Concomitant]
     Route: 065
     Dates: start: 20091001
  15. SODIUM PHOSPHATES [Concomitant]
     Route: 065
     Dates: start: 20081101
  16. ASPIRIN [Concomitant]
     Route: 065
     Dates: start: 20091026
  17. ALPRAZOLAM [Concomitant]
     Route: 065
     Dates: start: 20090101, end: 20090115
  18. ZOFRAN [Concomitant]
     Indication: HEADACHE
     Route: 065
  19. VICODIN [Concomitant]
     Route: 042
     Dates: start: 20081101, end: 20081115
  20. TRAMADOL [Concomitant]
     Indication: BACK PAIN
     Route: 065
     Dates: start: 20091101
  21. TRAZODONE [Concomitant]
     Route: 065
     Dates: start: 20090701
  22. DIETARY SUPPLEMENT [Concomitant]
     Route: 065
  23. HYDROCODONE BITARTRATE [Concomitant]
     Indication: BACK PAIN
     Route: 065
     Dates: start: 20091101
  24. PREDNISONE [Concomitant]
     Route: 065
     Dates: start: 20090701, end: 20090715
  25. VICODIN [Concomitant]
     Route: 048
     Dates: start: 20090601
  26. ATIVAN [Concomitant]
     Route: 065
  27. NORCO [Concomitant]
     Indication: PAIN
     Route: 065
  28. TORADOL [Concomitant]
     Route: 042
     Dates: start: 20081101, end: 20081115
  29. YAZ [Suspect]
     Indication: ORAL CONTRACEPTION
  30. HERBALS NOS W/MINERALS NOS/VITAMINS NOS [Concomitant]
     Indication: WEIGHT DECREASED
     Route: 065
  31. DILAUDID [Concomitant]
     Route: 042
     Dates: start: 20081101, end: 20081115
  32. METOPROLOL [Concomitant]
     Indication: SUPRAVENTRICULAR TACHYCARDIA
  33. FLEXERIL [Concomitant]
     Indication: SUPRAVENTRICULAR TACHYCARDIA
     Route: 065
     Dates: start: 20090501
  34. FLEET [SODIUM PHOSPHATE DIBASIC,SODIUM PHOSPHATE MONOBASIC] [Concomitant]
     Route: 065
     Dates: start: 20081101

REACTIONS (3)
  - SUPRAVENTRICULAR TACHYCARDIA [None]
  - HEART RATE INCREASED [None]
  - VAGINAL HAEMORRHAGE [None]
